FAERS Safety Report 23379303 (Version 1)
Quarter: 2024Q1

REPORT INFORMATION
  Report Type: Spontaneous
  Country: CA (occurrence: CA)
  Receive Date: 20240108
  Receipt Date: 20240108
  Transmission Date: 20240410
  Serious: Yes (Hospitalization)
  Sender: FDA-Public Use
  Company Number: CA-002147023-NVSC2023CA277229

PATIENT
  Age: 62 Year
  Sex: Male
  Weight: 68 kg

DRUGS (10)
  1. SANDOSTATIN [Suspect]
     Active Substance: OCTREOTIDE ACETATE
     Indication: Product used for unknown indication
     Dosage: UNK
     Route: 030
  2. SANDOSTATIN [Suspect]
     Active Substance: OCTREOTIDE ACETATE
  3. SANDOSTATIN [Suspect]
     Active Substance: OCTREOTIDE ACETATE
  4. INFLECTRA [Suspect]
     Active Substance: INFLIXIMAB-DYYB
     Indication: Crohn^s disease
     Dosage: 300 MG (WEEK 0 DOSE)
     Route: 042
     Dates: start: 20200604, end: 20200604
  5. INFLECTRA [Suspect]
     Active Substance: INFLIXIMAB-DYYB
     Dosage: 300 MG (WEEK 2 DOSE)
     Route: 042
     Dates: start: 20200619, end: 20200619
  6. INFLECTRA [Suspect]
     Active Substance: INFLIXIMAB-DYYB
     Dosage: 300 MG (WEEK 6 DOSE)
     Route: 042
     Dates: start: 20200717, end: 20200717
  7. INFLECTRA [Suspect]
     Active Substance: INFLIXIMAB-DYYB
     Dosage: 300 MG (RE-INDUCTION AT WORK 0, 2 AND 6 THEN EVERY 8 WEEKS)
     Route: 042
     Dates: start: 20210202
  8. INFLECTRA [Suspect]
     Active Substance: INFLIXIMAB-DYYB
     Dosage: 300 MG (RE-INDUCTION AT WORK 0, 2 AND 6 THEN EVERY 8 WEEKS)
     Route: 042
     Dates: start: 20231025
  9. INFLECTRA [Suspect]
     Active Substance: INFLIXIMAB-DYYB
     Dosage: 300 MG (RE-INDUCTION AT WORK 0, 2 AND 6 THEN EVERY 8 WEEKS) (AFTER 7 WEEKS AND 5 DAYS)
     Route: 042
     Dates: start: 20231218
  10. COUMADIN [Concomitant]
     Active Substance: WARFARIN SODIUM
     Indication: Product used for unknown indication
     Dosage: UNK
     Route: 065

REACTIONS (2)
  - Gout [Recovering/Resolving]
  - Puncture site haematoma [Recovering/Resolving]

NARRATIVE: CASE EVENT DATE: 20230101
